FAERS Safety Report 5229888-1 (Version None)
Quarter: 2007Q1

REPORT INFORMATION
  Report Type: 
  Country: None (occurrence: None)
  Receive Date: 20070206
  Receipt Date: 20061127
  Transmission Date: 20070707
  Serious: No
  Sender: FDA-Public Use
  Company Number: US-GLAXOSMITHKLINE-A0628448A

PATIENT
  Sex: Male

DRUGS (3)
  1. PAXIL [Suspect]
     Indication: ANXIETY DISORDER
     Route: 048
  2. PAROXETINE HYDROCHLORIDE [Suspect]
     Indication: ANXIETY DISORDER
     Route: 048
  3. BUSPAR [Concomitant]

REACTIONS (8)
  - ANXIETY [None]
  - CONFUSIONAL STATE [None]
  - DEPRESSION [None]
  - DRUG WITHDRAWAL SYNDROME [None]
  - NAUSEA [None]
  - SEXUAL DYSFUNCTION [None]
  - TREMOR [None]
  - VOMITING [None]
